FAERS Safety Report 7485448-3 (Version None)
Quarter: 2011Q2

REPORT INFORMATION
  Report Type: 
  Country: None (occurrence: None)
  Receive Date: 20110509
  Receipt Date: 20110502
  Transmission Date: 20111010
  Serious: Yes (Death)
  Sender: FDA-Public Use
  Company Number: DSA_45172_2011

PATIENT
  Sex: Female
  Weight: 56.6996 kg

DRUGS (9)
  1. PREMPRO [Concomitant]
  2. LEXAPRO [Concomitant]
  3. XENAZINE [Suspect]
     Indication: HUNTINGTON'S DISEASE
     Dosage: (50 MG BID ORAL)
     Route: 048
     Dates: start: 20091015, end: 20110101
  4. CALCIUM VITAMIN D [Concomitant]
  5. CARDIZEM [Concomitant]
  6. ATIVAN [Concomitant]
  7. SEROQUEL [Concomitant]
  8. ASPIRIN [Concomitant]
  9. BUPROPION HCL [Concomitant]

REACTIONS (2)
  - HYPOPHAGIA [None]
  - CIRCULATORY COLLAPSE [None]
